FAERS Safety Report 10475211 (Version 1)
Quarter: 2014Q3

REPORT INFORMATION
  Report Type: Report from Study
  Country: US (occurrence: US)
  Receive Date: 20140925
  Receipt Date: 20140925
  Transmission Date: 20150326
  Serious: Yes (Other)
  Sender: FDA-Public Use
  Company Number: US-ROCHE-1460961

PATIENT
  Age: 14 Year
  Sex: Male
  Weight: 59.3 kg

DRUGS (8)
  1. RITALIN [Concomitant]
     Active Substance: METHYLPHENIDATE HYDROCHLORIDE
     Route: 048
  2. LUPRON [Concomitant]
     Active Substance: LEUPROLIDE ACETATE
     Route: 065
  3. NUTROPIN AQ [Suspect]
     Active Substance: SOMATROPIN
     Route: 058
  4. LAMICTAL [Concomitant]
     Active Substance: LAMOTRIGINE
     Indication: EPILEPSY
     Route: 048
  5. HUMATROPE [Concomitant]
     Active Substance: SOMATROPIN
     Route: 065
  6. DIASTAT (DIAZEPAM RECTAL GEL) [Concomitant]
     Indication: CONVULSION
     Route: 054
  7. NUTROPIN AQ [Suspect]
     Active Substance: SOMATROPIN
     Indication: GROWTH HORMONE DEFICIENCY
     Route: 058
  8. NUTROPIN AQ [Suspect]
     Active Substance: SOMATROPIN
     Route: 058

REACTIONS (19)
  - Autism [Unknown]
  - Strabismus [Unknown]
  - Encephalopathy [Unknown]
  - Convulsion [Unknown]
  - Abnormal behaviour [Unknown]
  - Enuresis [Unknown]
  - Disturbance in attention [Unknown]
  - Nightmare [Unknown]
  - Visual impairment [Unknown]
  - Skin warm [Unknown]
  - Rhinorrhoea [Unknown]
  - Increased appetite [Unknown]
  - Faecal incontinence [Unknown]
  - Attention deficit/hyperactivity disorder [Unknown]
  - Upper respiratory tract infection [Recovering/Resolving]
  - Back pain [Unknown]
  - Visual impairment [Unknown]
  - Headache [Unknown]
  - Encopresis [Unknown]

NARRATIVE: CASE EVENT DATE: 201311
